FAERS Safety Report 5442556-6 (Version None)
Quarter: 2007Q3

REPORT INFORMATION
  Report Type: 
  Country: None (occurrence: None)
  Receive Date: 20070830
  Receipt Date: 20070525
  Transmission Date: 20080115
  Serious: Yes (Other)
  Sender: FDA-Public Use
  Company Number: 2007SP013578

PATIENT
  Sex: Male

DRUGS (4)
  1. CLARITIN-D 24 HOUR [Suspect]
     Indication: NASAL DISCOMFORT
     Dosage: PO
     Route: 048
  2. CLARITIN-D 24 HOUR [Suspect]
     Indication: RHINORRHOEA
     Dosage: PO
     Route: 048
  3. CLARITIN-D 24 HOUR [Suspect]
     Indication: SNEEZING
     Dosage: PO
     Route: 048
  4. CLARITIN-D 24 HOUR [Suspect]
     Indication: THROAT IRRITATION
     Dosage: PO
     Route: 048

REACTIONS (3)
  - ASTHMA [None]
  - CONDITION AGGRAVATED [None]
  - DRUG EFFECT DECREASED [None]
